FAERS Safety Report 5362141-4 (Version None)
Quarter: 2007Q2

REPORT INFORMATION
  Report Type: 
  Country: None (occurrence: None)
  Receive Date: 20070530
  Receipt Date: 20070310
  Transmission Date: 20071010
  Serious: No
  Sender: FDA-Public Use
  Company Number: 2007PV031444

PATIENT
  Age: 51 Year
  Sex: Female
  Weight: 114.3065 kg

DRUGS (3)
  1. BYETTA [Suspect]
     Indication: DIABETES MELLITUS NON-INSULIN-DEPENDENT
     Dosage: 10 MCG;BID;SC / 05 MCG;BID;SC
     Route: 058
     Dates: start: 20070201, end: 20070304
  2. BYETTA [Suspect]
     Indication: DIABETES MELLITUS NON-INSULIN-DEPENDENT
     Dosage: 10 MCG;BID;SC / 05 MCG;BID;SC
     Route: 058
     Dates: start: 20070305
  3. HUMALOG [Concomitant]

REACTIONS (6)
  - BLOOD GLUCOSE DECREASED [None]
  - BLOOD GLUCOSE INCREASED [None]
  - DECREASED APPETITE [None]
  - HUNGER [None]
  - NAUSEA [None]
  - WEIGHT DECREASED [None]
